FAERS Safety Report 17510238 (Version 4)
Quarter: 2020Q2

REPORT INFORMATION
  Report Type: Spontaneous
  Country: US (occurrence: US)
  Receive Date: 20200306
  Receipt Date: 20200429
  Transmission Date: 20200713
  Serious: No
  Sender: FDA-Public Use
  Company Number: US-PFIZER INC-2020100827

PATIENT
  Age: 75 Year
  Sex: Male
  Weight: 82.7 kg

DRUGS (23)
  1. TRAMADOL. [Concomitant]
     Active Substance: TRAMADOL
     Indication: PAIN
     Dosage: 50 MG, 4X/DAY (50 MG, PO, EVERY 6HR)
     Route: 048
  2. INLYTA [Suspect]
     Active Substance: AXITINIB
     Dosage: 3 MG, 2X/DAY (3MG Q12HRS)
     Route: 048
     Dates: start: 20200220
  3. MEGACE [Concomitant]
     Active Substance: MEGESTROL ACETATE
     Indication: APPETITE DISORDER
     Dosage: UNK, AS NEEDED (40 MG ORAL TABLET, 40 MG, 1 TAB(S), PO, 4XDAILY, PRN)
     Route: 048
  4. EMLA [Concomitant]
     Active Substance: LIDOCAINE\PRILOCAINE
     Dosage: UNK, AS NEEDED (.5%-2.5% TOPICAL CREAMS 1 APP, TOP, AS DIRECTED, PRN)
     Route: 061
  5. OXYCODONE [Concomitant]
     Active Substance: OXYCODONE
     Dosage: UNK, AS NEEDED (5 MG, PO, EVERY6HR, PRN)
     Route: 048
  6. TRAMADOL. [Concomitant]
     Active Substance: TRAMADOL
     Dosage: UNK, AS NEEDED
  7. LEVOTHYROXINE. [Concomitant]
     Active Substance: LEVOTHYROXINE
     Dosage: 25 UG, DAILY
     Route: 048
  8. AMLODIPINE [Concomitant]
     Active Substance: AMLODIPINE BESYLATE
     Dosage: 5 MG, DAILY
     Route: 048
  9. HEPARIN FLUSH [Concomitant]
     Active Substance: HEPARIN SODIUM
     Dosage: 5 ML, UNK(5ML IV AS DIRECTED)
     Route: 017
  10. SIMVASTATIN. [Concomitant]
     Active Substance: SIMVASTATIN
     Dosage: 40 MG, 1X/DAY
     Route: 048
  11. INLYTA [Suspect]
     Active Substance: AXITINIB
     Indication: MALIGNANT NEOPLASM OF RENAL PELVIS
     Dosage: 5 MG, 2X/DAY
     Route: 048
     Dates: start: 20200214
  12. DIGOXIN. [Concomitant]
     Active Substance: DIGOXIN
     Dosage: 125 UG, 1X/DAY
     Route: 048
  13. MONTELUKAST [Concomitant]
     Active Substance: MONTELUKAST SODIUM
     Dosage: 10 MG, 1X/DAY (NIGHT)
     Route: 048
  14. CLOPIDOGREL [Concomitant]
     Active Substance: CLOPIDOGREL BISULFATE
     Dosage: 75 MG, 1X/DAY
     Route: 048
  15. DOXAZOSIN [Concomitant]
     Active Substance: DOXAZOSIN MESYLATE
     Dosage: 4 MG, 1X/DAY (EVERY NIGHT)
     Route: 048
  16. SALINE [SODIUM CHLORIDE] [Concomitant]
     Active Substance: SODIUM CHLORIDE
     Dosage: 20 ML, UNK(20ML IV AS DIRECTED)
     Route: 042
  17. PREDNISONE. [Concomitant]
     Active Substance: PREDNISONE
     Dosage: 60 MG, 1X/DAY
  18. LEVOTHYROXINE. [Concomitant]
     Active Substance: LEVOTHYROXINE
     Dosage: 50 UG, DAILY
     Route: 048
  19. ALLOPURINOL. [Concomitant]
     Active Substance: ALLOPURINOL
     Dosage: 100 MG, 1X/DAY (NIGHT)
     Route: 048
  20. LOMOTIL [Concomitant]
     Active Substance: ATROPINE SULFATE\DIPHENOXYLATE HYDROCHLORIDE
     Dosage: UNK, AS NEEDED (2.5 MG-0.025 MG ORAL TABLET, 2 TAB(S), PO, 4XDAILY. PRN)
     Route: 048
  21. CARVEDILOL. [Concomitant]
     Active Substance: CARVEDILOL
     Dosage: 25 MG, 2X/DAY
     Route: 048
  22. KEYTRUDA [Concomitant]
     Active Substance: PEMBROLIZUMAB
     Dosage: 200 MG, : 8 ML, IVPB, AS DIRECTED), EVERY 3 WEEKS
     Route: 041
     Dates: start: 20200220, end: 20200320
  23. GABAPENTIN. [Concomitant]
     Active Substance: GABAPENTIN
     Dosage: 100 MG, 1X/DAY (NIGHT)
     Route: 048

REACTIONS (3)
  - Fatigue [Unknown]
  - Diarrhoea [Unknown]
  - Feeling abnormal [Unknown]

NARRATIVE: CASE EVENT DATE: 20200217
